FAERS Safety Report 17212973 (Version 1)
Quarter: 2019Q4

REPORT INFORMATION
  Report Type: Spontaneous
  Country: US (occurrence: US)
  Receive Date: 20191230
  Receipt Date: 20191230
  Transmission Date: 20200122
  Serious: No
  Sender: FDA-Public Use
  Company Number: US-JNJFOC-20191233937

PATIENT

DRUGS (1)
  1. WOMENS ROGAINE [Suspect]
     Active Substance: MINOXIDIL
     Indication: ALOPECIA
     Dosage: AS PER INSTRUCTIONS
     Route: 061
     Dates: start: 20161215, end: 20191218

REACTIONS (3)
  - Alopecia [Unknown]
  - Product odour abnormal [Unknown]
  - Product colour issue [Unknown]
